FAERS Safety Report 15492617 (Version 2)
Quarter: 2018Q4

REPORT INFORMATION
  Report Type: Spontaneous
  Country: DE (occurrence: DE)
  Receive Date: 20181012
  Receipt Date: 20181220
  Transmission Date: 20190205
  Serious: Yes (Hospitalization, Other)
  Sender: FDA-Public Use
  Company Number: DE-JNJFOC-20181009211

PATIENT
  Age: 76 Year
  Sex: Female
  Weight: 59.7 kg

DRUGS (31)
  1. RITUXIMAB. [Suspect]
     Active Substance: RITUXIMAB
     Indication: DIFFUSE LARGE B-CELL LYMPHOMA
     Dosage: INFUSION RATE 2.08 ML/MIN FROM 09:00 TO 13:00
     Route: 041
     Dates: start: 20180821, end: 20180821
  2. DOXORUBICIN HYDROCHLORIDE. [Suspect]
     Active Substance: DOXORUBICIN HYDROCHLORIDE
     Indication: DIFFUSE LARGE B-CELL LYMPHOMA
     Dosage: INFUSION RATE 6.66 ML/MIN FROM 09:00 TO 09:15
     Route: 041
     Dates: start: 20180620, end: 20180620
  3. DOXORUBICIN HYDROCHLORIDE. [Suspect]
     Active Substance: DOXORUBICIN HYDROCHLORIDE
     Indication: DIFFUSE LARGE B-CELL LYMPHOMA
     Dosage: INFUSION RATE 6.66 ML/MIN FROM 10:00 TO 10:15
     Route: 041
     Dates: start: 20180711, end: 20180711
  4. PREDNISONE. [Suspect]
     Active Substance: PREDNISONE
     Indication: DIFFUSE LARGE B-CELL LYMPHOMA
     Route: 048
     Dates: start: 20180417, end: 20180421
  5. CYCLOPHOSPHAMIDE. [Suspect]
     Active Substance: CYCLOPHOSPHAMIDE
     Indication: DIFFUSE LARGE B-CELL LYMPHOMA
     Dosage: INFUSION RATE 8.33 ML/MIN FROM 9:00 TO 10:00
     Route: 041
     Dates: start: 20180530, end: 20180530
  6. CYCLOPHOSPHAMIDE. [Suspect]
     Active Substance: CYCLOPHOSPHAMIDE
     Indication: DIFFUSE LARGE B-CELL LYMPHOMA
     Dosage: INFUSION RATE 8.33 ML/MIN FROM 8:00 TO 09:00
     Route: 041
     Dates: start: 20180620, end: 20180620
  7. CYCLOPHOSPHAMIDE. [Suspect]
     Active Substance: CYCLOPHOSPHAMIDE
     Indication: DIFFUSE LARGE B-CELL LYMPHOMA
     Dosage: INFUSION RATE 8.33 ML/MIN FROM 09:00 TO 10:00
     Route: 041
     Dates: start: 20180711, end: 20180711
  8. DOXORUBICIN HYDROCHLORIDE. [Suspect]
     Active Substance: DOXORUBICIN HYDROCHLORIDE
     Indication: DIFFUSE LARGE B-CELL LYMPHOMA
     Dosage: INFUSION RATE 6.67 ML/MIN FROM 10:00 TO 10:15
     Route: 041
     Dates: start: 20180530, end: 20180530
  9. VINCRISTINE [Suspect]
     Active Substance: VINCRISTINE
     Indication: DIFFUSE LARGE B-CELL LYMPHOMA
     Dosage: INFUSION RATE 50 ML/MIN
     Route: 041
     Dates: start: 20180418, end: 20180418
  10. VINCRISTINE [Suspect]
     Active Substance: VINCRISTINE
     Indication: DIFFUSE LARGE B-CELL LYMPHOMA
     Route: 041
     Dates: start: 20180530, end: 20180530
  11. RITUXIMAB. [Suspect]
     Active Substance: RITUXIMAB
     Indication: DIFFUSE LARGE B-CELL LYMPHOMA
     Dosage: INFUSION RATE 2.08 ML/MIN
     Route: 041
     Dates: start: 20180508, end: 20180508
  12. RITUXIMAB. [Suspect]
     Active Substance: RITUXIMAB
     Indication: DIFFUSE LARGE B-CELL LYMPHOMA
     Dosage: INFUSION RATE 2.08 ML/MIN
     Route: 041
     Dates: start: 20180619, end: 20180619
  13. RITUXIMAB. [Suspect]
     Active Substance: RITUXIMAB
     Indication: DIFFUSE LARGE B-CELL LYMPHOMA
     Dosage: INFUSION RATE 2.08 ML/MIN
     Route: 041
     Dates: start: 20180731, end: 20180731
  14. CYCLOPHOSPHAMIDE. [Suspect]
     Active Substance: CYCLOPHOSPHAMIDE
     Indication: DIFFUSE LARGE B-CELL LYMPHOMA
     Dosage: INFUSION RATE 8.3 ML/MIN FROM 9:00 TO 10:00
     Route: 041
     Dates: start: 20180418, end: 20180418
  15. CYCLOPHOSPHAMIDE. [Suspect]
     Active Substance: CYCLOPHOSPHAMIDE
     Indication: DIFFUSE LARGE B-CELL LYMPHOMA
     Dosage: INFUSION RATE 8.33 ML/MIN FROM 09:00 TO 10:00
     Route: 041
     Dates: start: 20180801, end: 20180801
  16. DOXORUBICIN HYDROCHLORIDE. [Suspect]
     Active Substance: DOXORUBICIN HYDROCHLORIDE
     Indication: DIFFUSE LARGE B-CELL LYMPHOMA
     Dosage: INFUSION RATE 6.67 ML/MIN FROM 10:00 TO 10:15
     Route: 041
     Dates: start: 20180418, end: 20180418
  17. DOXORUBICIN HYDROCHLORIDE. [Suspect]
     Active Substance: DOXORUBICIN HYDROCHLORIDE
     Indication: DIFFUSE LARGE B-CELL LYMPHOMA
     Dosage: INFUSION RATE 6.66 ML/MIN FROM 10:00 TO 10:15
     Route: 041
     Dates: start: 20180801, end: 20180801
  18. VINCRISTINE [Suspect]
     Active Substance: VINCRISTINE
     Indication: DIFFUSE LARGE B-CELL LYMPHOMA
     Route: 041
     Dates: start: 20180620, end: 20180620
  19. VINCRISTINE [Suspect]
     Active Substance: VINCRISTINE
     Indication: DIFFUSE LARGE B-CELL LYMPHOMA
     Route: 041
     Dates: start: 20180801, end: 20180801
  20. PREDNISONE. [Suspect]
     Active Substance: PREDNISONE
     Indication: DIFFUSE LARGE B-CELL LYMPHOMA
     Route: 048
     Dates: start: 20180529, end: 20180602
  21. PREDNISONE. [Suspect]
     Active Substance: PREDNISONE
     Indication: DIFFUSE LARGE B-CELL LYMPHOMA
     Route: 048
     Dates: start: 20180619, end: 20180623
  22. RITUXIMAB. [Suspect]
     Active Substance: RITUXIMAB
     Indication: DIFFUSE LARGE B-CELL LYMPHOMA
     Route: 041
     Dates: start: 20180529, end: 20180529
  23. DOXORUBICIN HYDROCHLORIDE. [Suspect]
     Active Substance: DOXORUBICIN HYDROCHLORIDE
     Indication: DIFFUSE LARGE B-CELL LYMPHOMA
     Dosage: INFUSION RATE 6.66 ML/MIN FROM 13:05 TO 13:20
     Route: 041
     Dates: start: 20180509, end: 20180509
  24. RITUXIMAB. [Suspect]
     Active Substance: RITUXIMAB
     Indication: DIFFUSE LARGE B-CELL LYMPHOMA
     Dosage: INFUSION RATE 2.08 ML/MIN
     Route: 041
     Dates: start: 20180417, end: 20180417
  25. PREDNISONE. [Suspect]
     Active Substance: PREDNISONE
     Indication: DIFFUSE LARGE B-CELL LYMPHOMA
     Route: 048
     Dates: start: 20180508, end: 20180512
  26. PREDNISONE. [Suspect]
     Active Substance: PREDNISONE
     Indication: DIFFUSE LARGE B-CELL LYMPHOMA
     Route: 048
     Dates: start: 20180710, end: 20180714
  27. PREDNISONE. [Suspect]
     Active Substance: PREDNISONE
     Indication: DIFFUSE LARGE B-CELL LYMPHOMA
     Route: 048
     Dates: start: 20180731, end: 20180804
  28. VINCRISTINE [Suspect]
     Active Substance: VINCRISTINE
     Indication: DIFFUSE LARGE B-CELL LYMPHOMA
     Route: 041
     Dates: start: 20180509, end: 20180509
  29. VINCRISTINE [Suspect]
     Active Substance: VINCRISTINE
     Indication: DIFFUSE LARGE B-CELL LYMPHOMA
     Route: 041
     Dates: start: 20180711, end: 20180711
  30. RITUXIMAB. [Suspect]
     Active Substance: RITUXIMAB
     Indication: DIFFUSE LARGE B-CELL LYMPHOMA
     Dosage: INFUSION RATE 2.08 ML/MIN
     Route: 041
     Dates: start: 20180710, end: 20180710
  31. CYCLOPHOSPHAMIDE. [Suspect]
     Active Substance: CYCLOPHOSPHAMIDE
     Indication: DIFFUSE LARGE B-CELL LYMPHOMA
     Dosage: INFUSION RATE 8.33 ML/MIN FROM 12:00 TO 13:00
     Route: 041
     Dates: start: 20180509, end: 20180509

REACTIONS (4)
  - Product use in unapproved indication [Unknown]
  - Cardiac failure [Recovered/Resolved]
  - Off label use [Unknown]
  - Tachyarrhythmia [Recovered/Resolved]

NARRATIVE: CASE EVENT DATE: 20180418
